FAERS Safety Report 10755785 (Version 1)
Quarter: 2015Q1

REPORT INFORMATION
  Report Type: Spontaneous
  Country: IT (occurrence: IT)
  Receive Date: 20150202
  Receipt Date: 20150202
  Transmission Date: 20150721
  Serious: Yes (Hospitalization)
  Sender: FDA-Public Use
  Company Number: IT-TEVA-537117ISR

PATIENT
  Age: 68 Year
  Sex: Male

DRUGS (2)
  1. CISPLATINO TEVA ITALIA -1MG/ML CONCENTRATO PER SOLUZIONE PER INFUSIONE [Concomitant]
     Indication: NEUROENDOCRINE CARCINOMA OF THE SKIN
     Route: 042
     Dates: start: 20150120, end: 20150122
  2. ETOPOSIDE TEVA - TEVA PHARMA B.V. [Suspect]
     Active Substance: ETOPOSIDE
     Indication: NEUROENDOCRINE CARCINOMA OF THE SKIN
     Route: 042
     Dates: start: 20150120, end: 20150122

REACTIONS (3)
  - Hypoxia [Unknown]
  - Bronchostenosis [Unknown]
  - Hypertension [Unknown]

NARRATIVE: CASE EVENT DATE: 20150122
